FAERS Safety Report 23430261 (Version 2)
Quarter: 2024Q1

REPORT INFORMATION
  Report Type: Spontaneous
  Country: US (occurrence: US)
  Receive Date: 20240123
  Receipt Date: 20240131
  Transmission Date: 20240410
  Serious: No
  Sender: FDA-Public Use
  Company Number: US-ABBVIE-5593594

PATIENT
  Sex: Female
  Weight: 68 kg

DRUGS (6)
  1. BOTOX COSMETIC [Suspect]
     Active Substance: ONABOTULINUMTOXINA
     Indication: Skin wrinkling
     Dosage: TIME INTERVAL: AS NECESSARY: FREQUENCY TEXT: EVERY 4 MONTHS
     Route: 065
     Dates: start: 2020, end: 2020
  2. BOTOX COSMETIC [Suspect]
     Active Substance: ONABOTULINUMTOXINA
     Indication: Skin wrinkling
     Dosage: TIME INTERVAL: AS NECESSARY: FREQUENCY TEXT: EVERY 4 MONTH
     Route: 065
     Dates: start: 202104, end: 202104
  3. BOTOX COSMETIC [Suspect]
     Active Substance: ONABOTULINUMTOXINA
     Indication: Skin wrinkling
     Dosage: TIME INTERVAL: AS NECESSARY
     Route: 065
     Dates: start: 202306, end: 202306
  4. TRETINOIN [Concomitant]
     Active Substance: TRETINOIN
     Indication: Skin disorder prophylaxis
  5. COVID-19 vaccine [Concomitant]
     Indication: COVID-19 immunisation
     Dates: start: 202103, end: 202103
  6. COVID-19 vaccine [Concomitant]
     Indication: COVID-19 immunisation
     Dates: start: 202104, end: 202104

REACTIONS (11)
  - Therapeutic response shortened [Not Recovered/Not Resolved]
  - COVID-19 [Recovered/Resolved]
  - Oropharyngeal pain [Recovered/Resolved]
  - COVID-19 [Recovered/Resolved]
  - Cough [Recovered/Resolved]
  - Drug resistance [Unknown]
  - Fatigue [Recovered/Resolved]
  - Pyrexia [Recovered/Resolved]
  - Dry throat [Recovered/Resolved]
  - Nasal congestion [Recovered/Resolved]
  - Drug ineffective [Not Recovered/Not Resolved]

NARRATIVE: CASE EVENT DATE: 20200101
